FAERS Safety Report 11812364 (Version 1)
Quarter: 2015Q4

REPORT INFORMATION
  Report Type: Spontaneous
  Country: IT (occurrence: IT)
  Receive Date: 20151208
  Receipt Date: 20151208
  Transmission Date: 20160305
  Serious: Yes (Other)
  Sender: FDA-Public Use
  Company Number: IT-SA-2015SA201713

PATIENT
  Age: 52 Year
  Sex: Female

DRUGS (15)
  1. LAMIVUDINE. [Concomitant]
     Active Substance: LAMIVUDINE
  2. KCL-RETARD [Concomitant]
     Active Substance: POTASSIUM CHLORIDE
     Dosage: PROLONGED RELEASE TABLETS
  3. MERITENE [Concomitant]
  4. ALLOPURINOL. [Concomitant]
     Active Substance: ALLOPURINOL
  5. NYSTATIN. [Concomitant]
     Active Substance: NYSTATIN
  6. MOVICOL [Concomitant]
     Active Substance: POLYETHYLENE GLYCOL 3350\POTASSIUM CHLORIDE\SODIUM BICARBONATE\SODIUM CHLORIDE
  7. CARDICOR [Concomitant]
     Active Substance: BISOPROLOL
  8. LASIX [Concomitant]
     Active Substance: FUROSEMIDE
     Dosage: 1/2 DAILY
  9. TRIATEC [Concomitant]
     Active Substance: RAMIPRIL
     Dosage: DIVISIBLE TABLETS
  10. GLICLAZIDE [Concomitant]
     Active Substance: GLICLAZIDE
  11. CAMPATH [Suspect]
     Active Substance: ALEMTUZUMAB
     Indication: CHRONIC LYMPHOCYTIC LEUKAEMIA
     Dosage: 30 MG CYCLIC
     Route: 058
     Dates: start: 20151021, end: 20151123
  12. EPOETIN ZETA [Concomitant]
     Active Substance: ERYTHROPOIETIN
  13. ONDANSETRON HYDROCHLORIDE. [Concomitant]
     Active Substance: ONDANSETRON HYDROCHLORIDE
  14. METHYLPREDNISOLONE. [Concomitant]
     Active Substance: METHYLPREDNISOLONE
     Route: 030
  15. CHLORHEXIDINE [Concomitant]
     Active Substance: CHLORHEXIDINE
     Dosage: MOUTHWASH

REACTIONS (2)
  - Lymphadenopathy [Not Recovered/Not Resolved]
  - Disease progression [Not Recovered/Not Resolved]

NARRATIVE: CASE EVENT DATE: 20151125
